FAERS Safety Report 18905204 (Version 1)
Quarter: 2021Q1

REPORT INFORMATION
  Report Type: Report from Study
  Country: US (occurrence: US)
  Receive Date: 20210217
  Receipt Date: 20210217
  Transmission Date: 20210420
  Serious: Yes (Other)
  Sender: FDA-Public Use
  Company Number: US-BRISTOL-MYERS SQUIBB COMPANY-BMS-2021-013623

PATIENT
  Sex: Female

DRUGS (8)
  1. AMIODARONE [Suspect]
     Active Substance: AMIODARONE
     Indication: ATRIAL FIBRILLATION
     Dosage: 400 MILLIGRAM, QD
     Route: 065
  2. AMIODARONE [Suspect]
     Active Substance: AMIODARONE
     Dosage: 200 MILLIGRAM
     Route: 065
  3. APIXABAN [Suspect]
     Active Substance: APIXABAN
     Indication: THROMBOSIS PROPHYLAXIS
  4. INSULIN [Concomitant]
     Active Substance: INSULIN NOS
     Indication: PRODUCT USED FOR UNKNOWN INDICATION
     Route: 065
  5. BABY ASPIRIN [Concomitant]
     Active Substance: ASPIRIN
     Indication: PRODUCT USED FOR UNKNOWN INDICATION
     Route: 065
  6. VITAMINS NOS [Concomitant]
     Active Substance: VITAMINS
     Indication: PRODUCT USED FOR UNKNOWN INDICATION
     Route: 065
  7. APIXABAN [Suspect]
     Active Substance: APIXABAN
     Indication: CEREBROVASCULAR ACCIDENT PROPHYLAXIS
     Dosage: 2.5 MILLIGRAM, BID
     Route: 048
     Dates: start: 202011
  8. AMIODARONE [Suspect]
     Active Substance: AMIODARONE
     Dosage: 100 MILLIGRAM
     Route: 065

REACTIONS (21)
  - Dysarthria [Unknown]
  - General physical health deterioration [Unknown]
  - Micturition urgency [Unknown]
  - Hallucination [Unknown]
  - Decreased appetite [Unknown]
  - Drug ineffective [Unknown]
  - Arthralgia [Unknown]
  - Weight decreased [Unknown]
  - Hypotension [Unknown]
  - Asthenia [Unknown]
  - Drug interaction [Unknown]
  - Blood glucose increased [Unknown]
  - Fatigue [Unknown]
  - Constipation [Unknown]
  - Joint stiffness [Unknown]
  - Anxiety [Unknown]
  - Quality of life decreased [Unknown]
  - Dehydration [Unknown]
  - Hyperaesthesia [Unknown]
  - Thirst [Unknown]
  - Cough [Unknown]
